FAERS Safety Report 4411678-0 (Version None)
Quarter: 2004Q3

REPORT INFORMATION
  Report Type: 
  Country: None (occurrence: None)
  Receive Date: 20040729
  Receipt Date: 20040729
  Transmission Date: 20050211
  Serious: Yes (Hospitalization)
  Sender: FDA-Public Use
  Company Number: None

PATIENT
  Sex: Male
  Weight: 77 kg

DRUGS (3)
  1. GEMCITABINE [Suspect]
     Indication: PANCREATIC CARCINOMA
     Dosage: 1600 MG WKX2 1 WK INTRAVENOUS
     Route: 042
     Dates: start: 20040628, end: 20040628
  2. GEMCITABINE [Suspect]
     Indication: PANCREATIC CARCINOMA
     Dosage: 1600 MG WKX2 1 WK INTRAVENOUS
     Route: 042
     Dates: start: 20040707, end: 20040707
  3. COUMADIN [Concomitant]

REACTIONS (2)
  - GASTROINTESTINAL HAEMORRHAGE [None]
  - PANCYTOPENIA [None]
